FAERS Safety Report 21747843 (Version 1)
Quarter: 2022Q4

REPORT INFORMATION
  Report Type: Spontaneous
  Country: US (occurrence: US)
  Receive Date: 20221219
  Receipt Date: 20221219
  Transmission Date: 20230112
  Serious: Yes (Hospitalization, Other)
  Sender: FDA-Public Use
  Company Number: US-PFIZER INC-PV202200123456

PATIENT
  Age: 72 Year
  Sex: Female

DRUGS (2)
  1. SOMAVERT [Suspect]
     Active Substance: PEGVISOMANT
     Indication: Acromegaly
     Dosage: 20 MG, DAILY
     Route: 058
     Dates: start: 2012
  2. METFORMIN [Concomitant]
     Active Substance: METFORMIN HYDROCHLORIDE
     Dosage: UNK
     Dates: start: 2012

REACTIONS (5)
  - Loss of consciousness [Unknown]
  - Myocardial necrosis marker increased [Unknown]
  - Sleep apnoea syndrome [Unknown]
  - Nausea [Unknown]
  - Diarrhoea [Unknown]
